FAERS Safety Report 4330360-1 (Version None)
Quarter: 2004Q1

REPORT INFORMATION
  Report Type: 
  Country: None (occurrence: None)
  Receive Date: 20040329
  Receipt Date: 20040316
  Transmission Date: 20041129
  Serious: Yes (Hospitalization, Other)
  Sender: FDA-Public Use
  Company Number: 2004017634

PATIENT
  Age: 72 Year
  Sex: Female

DRUGS (4)
  1. FELDENE [Suspect]
     Indication: BACK PAIN
     Dosage: ORAL
     Route: 048
     Dates: start: 20031212, end: 20031212
  2. FLECAINIDE ACETATE [Concomitant]
  3. RALOXIFENE HYDROCHLORIDE (RALOXIFENE HYDROCHLORIDE) [Concomitant]
  4. LEVOTHYROXINE SODIUM [Concomitant]

REACTIONS (4)
  - ANURIA [None]
  - DIALYSIS [None]
  - GASTROENTERITIS [None]
  - RENAL FAILURE ACUTE [None]
